FAERS Safety Report 4282320-7 (Version None)
Quarter: 2004Q1

REPORT INFORMATION
  Report Type: 
  Country: None (occurrence: None)
  Receive Date: 20040112
  Receipt Date: 20031119
  Transmission Date: 20041129
  Serious: Yes (Death, Hospitalization)
  Sender: FDA-Public Use
  Company Number: 352284

PATIENT
  Sex: Male

DRUGS (1)
  1. FUZEON [Suspect]
     Dosage: 90MG 2 PER DAY; SUBCUTANEOUS
     Route: 058

REACTIONS (2)
  - DEATH [None]
  - GASTROENTERITIS CRYPTOSPORIDIAL [None]
